FAERS Safety Report 4909197-8 (Version None)
Quarter: 2006Q1

REPORT INFORMATION
  Report Type: 
  Country: None (occurrence: None)
  Receive Date: 20060213
  Receipt Date: 20060207
  Transmission Date: 20060701
  Serious: Yes (Death, Hospitalization)
  Sender: FDA-Public Use
  Company Number: PHHO2006TW02327

PATIENT
  Age: 98 Year
  Sex: Male

DRUGS (4)
  1. TAXOTERE [Suspect]
     Indication: PROSTATE CANCER
     Dosage: NO TREATMENT
  2. TAXOTERE [Suspect]
     Dosage: 80 MG
     Dates: start: 19941215
  3. TAXOTERE [Suspect]
     Dosage: 80 MG
     Dates: start: 19941125
  4. ZOLEDRONATE [Suspect]
     Indication: METASTASES TO BONE
     Dosage: 4 MG
     Route: 042
     Dates: start: 20051124

REACTIONS (4)
  - HYPOCALCAEMIA [None]
  - HYPOPHOSPHATAEMIA [None]
  - LEUKOPENIA [None]
  - PNEUMONIA [None]
